FAERS Safety Report 10433244 (Version 1)
Quarter: 2014Q3

REPORT INFORMATION
  Report Type: Spontaneous
  Country: CN (occurrence: CN)
  Receive Date: 20140905
  Receipt Date: 20140905
  Transmission Date: 20150326
  Serious: Yes (Other)
  Sender: FDA-Public Use
  Company Number: CN-PFIZER INC-2014246056

PATIENT
  Age: 67 Year
  Sex: Male
  Weight: 45 kg

DRUGS (2)
  1. MORPHINE SULFATE. [Suspect]
     Active Substance: MORPHINE SULFATE
     Indication: PAIN
     Dosage: 10 MG, AS NEEDED
     Route: 048
     Dates: start: 20130126, end: 20130128
  2. OXYCONTIN [Suspect]
     Active Substance: OXYCODONE HYDROCHLORIDE
     Indication: PAIN
     Dosage: 10 MG, 2X/DAY (Q12H, 10 MG, AT 8:00 AM AND 20:00 PM)
     Route: 048
     Dates: start: 20130126, end: 20130128

REACTIONS (4)
  - Syncope [Recovering/Resolving]
  - Listless [Recovering/Resolving]
  - Lethargy [Recovering/Resolving]
  - Somnolence [Recovering/Resolving]

NARRATIVE: CASE EVENT DATE: 20130126
